FAERS Safety Report 21914308 (Version 1)
Quarter: 2023Q1

REPORT INFORMATION
  Report Type: Spontaneous
  Country: US (occurrence: US)
  Receive Date: 20230126
  Receipt Date: 20230126
  Transmission Date: 20230417
  Serious: Yes (Other)
  Sender: FDA-Public Use
  Company Number: US-drreddys-SPO/USA/23/0160162

PATIENT
  Age: 56 Year
  Sex: Male

DRUGS (7)
  1. TACROLIMUS [Suspect]
     Active Substance: TACROLIMUS
     Indication: Immunosuppressant drug therapy
  2. RITUXIMAB [Suspect]
     Active Substance: RITUXIMAB
     Indication: Transplant rejection
  3. PREDNISONE [Suspect]
     Active Substance: PREDNISONE
     Indication: Immunosuppressant drug therapy
     Dosage: TAPER
  4. THYMOCYTE IMMUNE GLOBULIN NOS [Suspect]
     Active Substance: THYMOCYTE IMMUNE GLOBULIN NOS
     Indication: Transplant rejection
  5. MYCOPHENOLATE MOFETIL [Suspect]
     Active Substance: MYCOPHENOLATE MOFETIL
     Indication: Immunosuppressant drug therapy
     Dosage: TAPER
  6. VALGANCICLOVIR [Concomitant]
     Active Substance: VALGANCICLOVIR
     Indication: Cytomegalovirus infection
  7. ATOVAQUONE [Concomitant]
     Active Substance: ATOVAQUONE
     Indication: Cytomegalovirus infection

REACTIONS (10)
  - Staphylococcal infection [Recovered/Resolved with Sequelae]
  - Staphylococcal skin infection [Recovered/Resolved with Sequelae]
  - Penile ulceration [Recovered/Resolved with Sequelae]
  - Escherichia infection [Recovered/Resolved with Sequelae]
  - Proteus infection [Recovered/Resolved]
  - Klebsiella infection [Recovered/Resolved with Sequelae]
  - Malacoplakia [Recovered/Resolved with Sequelae]
  - Scrotal ulcer [Recovered/Resolved with Sequelae]
  - Enterococcal infection [Recovered/Resolved with Sequelae]
  - Skin ulcer [Recovered/Resolved with Sequelae]
